FAERS Safety Report 6077660-5 (Version None)
Quarter: 2009Q1

REPORT INFORMATION
  Report Type: 
  Country: None (occurrence: None)
  Receive Date: 20090213
  Receipt Date: 20090205
  Transmission Date: 20090719
  Serious: Yes (Hospitalization)
  Sender: FDA-Public Use
  Company Number: US-JNJFOC-20090202451

PATIENT
  Age: 46 Year
  Sex: Female
  Weight: 108.41 kg

DRUGS (9)
  1. REMICADE [Suspect]
     Dosage: AT LEAST TWO INFUSIONS
     Route: 042
  2. REMICADE [Suspect]
     Indication: CROHN'S DISEASE
     Route: 042
  3. METHOTREXATE [Suspect]
     Indication: CROHN'S DISEASE
     Dosage: ONE DOSE EVERY OTHER DAY
     Route: 048
  4. PREDNISONE [Concomitant]
     Route: 048
  5. ASACOL [Concomitant]
  6. QUESTRAN [Concomitant]
     Dosage: DOSE: ONE SCOOP
     Route: 048
  7. PAXIL [Concomitant]
  8. IMODIUM [Concomitant]
     Dosage: DOSE AS NEEDED
  9. PREMPHASE 14/14 [Concomitant]
     Dosage: DOSE: 1-28

REACTIONS (1)
  - HISTOPLASMOSIS DISSEMINATED [None]
